FAERS Safety Report 9303797 (Version 1)
Quarter: 2013Q2

REPORT INFORMATION
  Report Type: Spontaneous
  Country: US (occurrence: None)
  Receive Date: 20130521
  Receipt Date: 20130521
  Transmission Date: 20140414
  Serious: Yes (Hospitalization)
  Sender: FDA-Public Use
  Company Number: None

PATIENT
  Age: 63 Year
  Sex: Male
  Weight: 88.1 kg

DRUGS (2)
  1. IMATINIB [Suspect]
     Indication: CHRONIC MYELOID LEUKAEMIA
     Route: 048
     Dates: start: 20100505, end: 20130107
  2. GLIPIZIDE [Suspect]
     Indication: DIABETES MELLITUS
     Dosage: 400 MG EVERY DAY PO
     Dates: start: 20100605, end: 20130123

REACTIONS (3)
  - Hepatitis cholestatic [None]
  - Hepatic steatosis [None]
  - Drug-induced liver injury [None]
